FAERS Safety Report 11628684 (Version 3)
Quarter: 2015Q4

REPORT INFORMATION
  Report Type: Spontaneous
  Country: RU (occurrence: RU)
  Receive Date: 20151014
  Receipt Date: 20151026
  Transmission Date: 20160304
  Serious: Yes (Life-Threatening)
  Sender: FDA-Public Use
  Company Number: RU-SA-2015SA160116

PATIENT
  Age: 50 Year
  Sex: Male

DRUGS (1)
  1. TRENTAL [Suspect]
     Active Substance: PENTOXIFYLLINE
     Route: 030

REACTIONS (5)
  - Hypertensive crisis [Recovering/Resolving]
  - Agitation [Recovering/Resolving]
  - Incorrect route of drug administration [Recovering/Resolving]
  - Hyperaemia [Recovering/Resolving]
  - Insomnia [Recovering/Resolving]
